FAERS Safety Report 7971864-X (Version None)
Quarter: 2011Q4

REPORT INFORMATION
  Report Type: 
  Country: None (occurrence: None)
  Receive Date: 20111212
  Receipt Date: 20111201
  Transmission Date: 20120403
  Serious: Yes (Hospitalization)
  Sender: FDA-Public Use
  Company Number: IT-ASTRAZENECA-2011SE72929

PATIENT
  Age: 29091 Day
  Sex: Male

DRUGS (10)
  1. PREDNISONE TAB [Suspect]
     Indication: CONNECTIVE TISSUE DISORDER
     Route: 048
     Dates: start: 20080101
  2. RAMIPRIL [Suspect]
     Indication: HYPERTENSION
     Route: 048
     Dates: start: 20080101
  3. ACETYLSALICYLIC ACID SRT [Concomitant]
     Indication: CARDIOVASCULAR EVENT PROPHYLAXIS
     Route: 048
  4. PLAQUENIL [Suspect]
     Indication: CONNECTIVE TISSUE DISORDER
     Route: 048
     Dates: start: 20080101, end: 20110906
  5. TRAMADOL HCL [Suspect]
     Indication: ANALGESIC THERAPY
     Route: 048
     Dates: start: 20080101
  6. TRENTAL [Suspect]
     Indication: PROPHYLAXIS
     Route: 048
     Dates: start: 20080101
  7. LASIX [Suspect]
     Indication: HYPERTENSION
     Route: 048
     Dates: start: 20080101
  8. LAMIVUDINE [Suspect]
     Indication: HEPATITIS B
     Route: 048
     Dates: start: 20080101
  9. SPIRIVA RESPIMAT [Concomitant]
     Indication: CHRONIC OBSTRUCTIVE PULMONARY DISEASE
     Dosage: 2.5 MCG INHALATION SOLUTION, 3 INHALER RESPIMAT+ 3 CARTRIDGES FROM 60 DISBURSEMENTS
     Route: 055
  10. OMEPRAZOLE [Suspect]
     Indication: PROPHYLAXIS AGAINST GASTROINTESTINAL ULCER
     Route: 048
     Dates: start: 20080101

REACTIONS (4)
  - BRADYPHRENIA [None]
  - ASTHENIA [None]
  - HYPONATRAEMIA [None]
  - HYPOTENSION [None]
